FAERS Safety Report 9165835 (Version 2)
Quarter: 2013Q1

REPORT INFORMATION
  Report Type: Spontaneous
  Country: JP (occurrence: JP)
  Receive Date: 20130315
  Receipt Date: 20130325
  Transmission Date: 20140127
  Serious: Yes (Other)
  Sender: FDA-Public Use
  Company Number: JP-JNJFOC-20130306385

PATIENT
  Age: 15 Year
  Sex: Female

DRUGS (4)
  1. RISPERDAL [Suspect]
     Indication: ANXIETY
     Route: 048
     Dates: end: 201302
  2. RISPERDAL [Suspect]
     Indication: ANXIETY
     Route: 048
     Dates: start: 20130308
  3. RISPERDAL [Suspect]
     Indication: ANXIETY
     Route: 048
     Dates: start: 201302, end: 20130307
  4. ANAFRANIL [Suspect]
     Indication: ANXIETY
     Route: 048

REACTIONS (2)
  - Vasculitis [Recovered/Resolved]
  - Weight increased [Not Recovered/Not Resolved]
